FAERS Safety Report 19246068 (Version 1)
Quarter: 2021Q2

REPORT INFORMATION
  Report Type: Spontaneous
  Country: US (occurrence: US)
  Receive Date: 20210511
  Receipt Date: 20210511
  Transmission Date: 20210717
  Serious: Yes (Hospitalization)
  Sender: FDA-Public Use
  Company Number: None

PATIENT
  Age: 82 Year
  Sex: Male

DRUGS (12)
  1. FEROSUL [Concomitant]
     Active Substance: FERROUS SULFATE
  2. MULTIVITAMIN [Concomitant]
     Active Substance: VITAMINS
  3. DONEPEZIL. [Concomitant]
     Active Substance: DONEPEZIL
  4. SIROLIMUS. [Suspect]
     Active Substance: SIROLIMUS
     Indication: RENAL TRANSPLANT
     Route: 048
     Dates: start: 20190919
  5. MEMANTINE. [Concomitant]
     Active Substance: MEMANTINE
  6. PREDNISONE. [Concomitant]
     Active Substance: PREDNISONE
  7. FINASTERIDE. [Concomitant]
     Active Substance: FINASTERIDE
  8. SODIUM BICARB [Concomitant]
     Active Substance: SODIUM BICARBONATE
  9. TAMSULOSIN [Concomitant]
     Active Substance: TAMSULOSIN
  10. VITAMIN D3 [Concomitant]
     Active Substance: CHOLECALCIFEROL
  11. ATORVASTATIN [Concomitant]
     Active Substance: ATORVASTATIN
  12. FUROSEMIDE. [Concomitant]
     Active Substance: FUROSEMIDE

REACTIONS (1)
  - Viral infection [None]

NARRATIVE: CASE EVENT DATE: 20210503
